FAERS Safety Report 13052239 (Version 1)
Quarter: 2016Q4

REPORT INFORMATION
  Report Type: Spontaneous
  Country: DE (occurrence: DE)
  Receive Date: 20161221
  Receipt Date: 20161221
  Transmission Date: 20170207
  Serious: Yes (Other)
  Sender: FDA-Public Use
  Company Number: DE-TEVA-720649GER

PATIENT
  Age: 0 Year
  Sex: Male

DRUGS (4)
  1. CITALOPRAM [Suspect]
     Active Substance: CITALOPRAM HYDROBROMIDE
     Route: 064
  2. CITALOPRAM [Suspect]
     Active Substance: CITALOPRAM HYDROBROMIDE
     Indication: DEPRESSION
     Route: 063
  3. EDRONAX [Suspect]
     Active Substance: REBOXETINE MESYLATE
     Route: 064
  4. EDRONAX [Suspect]
     Active Substance: REBOXETINE MESYLATE
     Indication: DEPRESSION
     Route: 063

REACTIONS (7)
  - Feeding disorder [Recovering/Resolving]
  - Hypotonia [Recovering/Resolving]
  - Weight gain poor [Recovering/Resolving]
  - Alanine aminotransferase increased [Recovering/Resolving]
  - Foetal exposure during pregnancy [Unknown]
  - Aspartate aminotransferase increased [Recovering/Resolving]
  - Exposure during breast feeding [Unknown]
